FAERS Safety Report 5413118-1 (Version None)
Quarter: 2007Q3

REPORT INFORMATION
  Report Type: 
  Country: None (occurrence: None)
  Receive Date: 20070809
  Receipt Date: 20070731
  Transmission Date: 20080115
  Serious: Yes (Hospitalization)
  Sender: FDA-Public Use
  Company Number: 2007-03600

PATIENT
  Age: 64 Year
  Sex: Female

DRUGS (12)
  1. PREDNISOLONE [Suspect]
     Indication: DRUG USE FOR UNKNOWN INDICATION
     Dosage: 4 MG, DAILY
  2. PREDNISONE [Suspect]
     Dosage: 20 MG, DAILY
  3. FENOTEROL (FENOTEROL) [Concomitant]
  4. METHOTREXATE [Concomitant]
  5. FOLIC ACID [Concomitant]
  6. PREGABALIN [Concomitant]
  7. HYDROCHLOROTHIAZIDE [Concomitant]
  8. CALCIUM WITH VITAMIN D (CALCIUM PHOSPHATE, CALCIUM SODIUM LACTATE, ERG [Concomitant]
  9. POTASSIUM TABLETS EFFERVESCENT (POTASSIUM BITARTRATE) [Concomitant]
  10. CITALOPRAM HYDROBROMIDE [Concomitant]
  11. AMITRIPTYLINE HCL [Concomitant]
  12. MARCUMAR [Concomitant]

REACTIONS (2)
  - GAIT DISTURBANCE [None]
  - LIPOMATOSIS [None]
